FAERS Safety Report 5818262-2 (Version None)
Quarter: 2008Q3

REPORT INFORMATION
  Report Type: 
  Country: None (occurrence: None)
  Receive Date: 20080717
  Receipt Date: 20080707
  Transmission Date: 20090109
  Serious: Yes (Disabling)
  Sender: FDA-Public Use
  Company Number: 002018

PATIENT
  Age: 64 Year
  Sex: Male

DRUGS (8)
  1. BUSULFEX [Suspect]
     Indication: STEM CELL TRANSPLANT
     Dosage: 19.5 ML, DAILY DOSE  INTRAVENOUS; 26 ML, DAILY DOSE; INTRAVENOUS;  6.5 ML, DAILY DOSE; INTRAVENOU
     Route: 042
     Dates: start: 20070705, end: 20070705
  2. BUSULFEX [Suspect]
     Indication: STEM CELL TRANSPLANT
     Dosage: 19.5 ML, DAILY DOSE  INTRAVENOUS; 26 ML, DAILY DOSE; INTRAVENOUS;  6.5 ML, DAILY DOSE; INTRAVENOU
     Route: 042
     Dates: start: 20070706, end: 20070706
  3. BUSULFEX [Suspect]
     Indication: STEM CELL TRANSPLANT
     Dosage: 19.5 ML, DAILY DOSE  INTRAVENOUS; 26 ML, DAILY DOSE; INTRAVENOUS;  6.5 ML, DAILY DOSE; INTRAVENOU
     Route: 042
     Dates: start: 20070707, end: 20070707
  4. FLUDARABINE PHOSPHATE [Concomitant]
  5. VALPROATE SODIUM [Concomitant]
  6. FILGRASTIM (FILGRASTIM) [Concomitant]
  7. TACROLIMUS [Concomitant]
  8. MYCOPHENOLATE MOFETIL [Concomitant]

REACTIONS (8)
  - CORD BLOOD TRANSPLANT THERAPY [None]
  - CYSTITIS [None]
  - DIARRHOEA [None]
  - ENCEPHALITIS VIRAL [None]
  - MALAISE [None]
  - NAUSEA [None]
  - PNEUMONIA [None]
  - STREPTOCOCCAL SEPSIS [None]
